FAERS Safety Report 21131278 (Version 1)
Quarter: 2022Q3

REPORT INFORMATION
  Report Type: Spontaneous
  Country: FR (occurrence: FR)
  Receive Date: 20220726
  Receipt Date: 20220726
  Transmission Date: 20221026
  Serious: Yes (Other)
  Sender: FDA-Public Use
  Company Number: None

PATIENT

DRUGS (4)
  1. VOLTARENE (DICLOFENAC SODIUM) [Suspect]
     Active Substance: DICLOFENAC SODIUM
     Indication: Myalgia
     Dosage: UNK
     Route: 048
  2. NAPHAZOLINE NITRATE\PREDNISOLONE [Concomitant]
     Active Substance: NAPHAZOLINE NITRATE\PREDNISOLONE
     Indication: Nasopharyngitis
     Dosage: UNK (NASAL SPRAY SOLUTION)
     Route: 045
  3. DICLOFENAC SODIUM [Concomitant]
     Active Substance: DICLOFENAC SODIUM
     Indication: Tendonitis
     Dosage: UNK
     Route: 003
  4. TOPLEXIL (OXOMEMAZINE) [Concomitant]
     Active Substance: OXOMEMAZINE
     Indication: Oropharyngeal pain
     Dosage: UNK (SYRUP)
     Route: 048

REACTIONS (1)
  - Gastrointestinal disorder [Not Recovered/Not Resolved]

NARRATIVE: CASE EVENT DATE: 20211229
